FAERS Safety Report 20676768 (Version 1)
Quarter: 2022Q2

REPORT INFORMATION
  Report Type: Spontaneous
  Country: HR (occurrence: HR)
  Receive Date: 20220406
  Receipt Date: 20220406
  Transmission Date: 20220721
  Serious: Yes (Other)
  Sender: FDA-Public Use
  Company Number: None

PATIENT
  Sex: Female

DRUGS (2)
  1. NEBIVOLOL [Suspect]
     Active Substance: NEBIVOLOL
     Route: 048
     Dates: start: 20211022, end: 20211022
  2. XANAX [Suspect]
     Active Substance: ALPRAZOLAM
     Route: 048
     Dates: start: 20211022, end: 20211022

REACTIONS (2)
  - Suicide attempt [Unknown]
  - Slow speech [Unknown]

NARRATIVE: CASE EVENT DATE: 20211022
